FAERS Safety Report 15885204 (Version 1)
Quarter: 2019Q1

REPORT INFORMATION
  Report Type: Spontaneous
  Country: IT (occurrence: IT)
  Receive Date: 20190129
  Receipt Date: 20190129
  Transmission Date: 20190417
  Serious: Yes (Other)
  Sender: FDA-Public Use
  Company Number: IT-BAYER-2019-015338

PATIENT
  Age: 44 Year
  Sex: Male
  Weight: 78 kg

DRUGS (11)
  1. CIPROXIN 500 MG [Suspect]
     Active Substance: CIPROFLOXACIN
     Indication: ANTIBIOTIC THERAPY
     Dosage: 1000 MG, UNK
     Route: 048
     Dates: start: 20181228, end: 20190102
  2. LANTUS [Concomitant]
     Active Substance: INSULIN GLARGINE
     Indication: DIABETES MELLITUS
     Dosage: UNK
     Route: 058
  3. AULIN [Concomitant]
     Active Substance: NIMESULIDE
     Indication: PAIN
     Dosage: 100 MG, UNK
     Route: 048
     Dates: start: 20181228, end: 20190110
  4. TORVAST [Concomitant]
     Active Substance: ATORVASTATIN
     Indication: ACUTE MYOCARDIAL INFARCTION
     Dosage: 80 MG, UNK
     Dates: start: 20180204, end: 20181201
  5. SEQUACOR [Concomitant]
     Active Substance: BISOPROLOL
     Indication: HYPERTENSION
     Dosage: 7.5 MG, UNK
     Route: 048
  6. HUMALOG [Concomitant]
     Active Substance: INSULIN LISPRO
     Indication: DIABETES MELLITUS
     Dosage: UNK
     Route: 058
  7. EZETIMIBE;ROSUVASTATIN ZINC [Concomitant]
     Indication: HYPERCHOLESTEROLAEMIA
     Dosage: 30 MG, UNK
     Route: 048
     Dates: start: 20181201
  8. PLAVIX [Concomitant]
     Active Substance: CLOPIDOGREL BISULFATE
     Dosage: 75 MG, UNK
  9. CARDIOASPIRIN [Concomitant]
     Active Substance: ASPIRIN
     Dosage: 100 MG, UNK
  10. ENTRESTO [Concomitant]
     Active Substance: SACUBITRIL\VALSARTAN
     Indication: CARDIAC FAILURE
     Dosage: UNK
     Route: 048
  11. LASIX [Concomitant]
     Active Substance: FUROSEMIDE
     Dosage: 25 MG, UNK

REACTIONS (4)
  - Pyrexia [Recovering/Resolving]
  - Hyperglycaemia [Recovering/Resolving]
  - Fistula [Recovering/Resolving]
  - Abscess [Recovering/Resolving]

NARRATIVE: CASE EVENT DATE: 20190102
